FAERS Safety Report 7178224-2 (Version None)
Quarter: 2010Q4

REPORT INFORMATION
  Report Type: 
  Country: None (occurrence: None)
  Receive Date: 20101220
  Receipt Date: 20101213
  Transmission Date: 20110411
  Serious: Yes (Hospitalization)
  Sender: FDA-Public Use
  Company Number: LU-B.I. PHARMACEUTICALS,INC./RIDGEFIELD-2010-BL-00482BL

PATIENT
  Sex: Female
  Weight: 86 kg

DRUGS (2)
  1. MICARDIS HCT [Suspect]
     Indication: HYPERTENSION
     Dosage: 80/25MG
     Route: 048
     Dates: start: 20091012, end: 20101119
  2. PRAVASINE [Concomitant]

REACTIONS (1)
  - PNEUMONIA [None]
